FAERS Safety Report 13933326 (Version 1)
Quarter: 2017Q3

REPORT INFORMATION
  Report Type: Spontaneous
  Country: FR (occurrence: FR)
  Receive Date: 20170904
  Receipt Date: 20170904
  Transmission Date: 20171127
  Serious: Yes (Hospitalization)
  Sender: FDA-Public Use
  Company Number: FR-009507513-1708FRA012129

PATIENT
  Age: 62 Year
  Sex: Male

DRUGS (2)
  1. CANCIDAS [Suspect]
     Active Substance: CASPOFUNGIN ACETATE
     Indication: LUNG DISORDER
     Dosage: UNSPECIFIED
     Route: 042
     Dates: start: 20170725, end: 20170814
  2. BACTRIM [Suspect]
     Active Substance: SULFAMETHOXAZOLE\TRIMETHOPRIM
     Indication: LUNG DISORDER
     Dosage: UNK
     Route: 048
     Dates: start: 20170725, end: 20170814

REACTIONS (4)
  - Cell death [Recovering/Resolving]
  - Melanosis [Recovering/Resolving]
  - Hypersensitivity [Recovering/Resolving]
  - Eosinophilia [Recovering/Resolving]

NARRATIVE: CASE EVENT DATE: 20170814
